FAERS Safety Report 9914607 (Version 2)
Quarter: 2014Q1

REPORT INFORMATION
  Report Type: Report from Study
  Country: US (occurrence: US)
  Receive Date: 20140220
  Receipt Date: 20140321
  Transmission Date: 20141002
  Serious: Yes (Death)
  Sender: FDA-Public Use
  Company Number: US-SA-2014SA019374

PATIENT
  Age: 75 Year
  Sex: Male

DRUGS (1)
  1. CLOLAR [Suspect]
     Indication: MYELODYSPLASTIC SYNDROME
     Dosage: 9*20 MG VIALS
     Route: 065
     Dates: start: 20130715

REACTIONS (1)
  - Death [Fatal]
